FAERS Safety Report 5574671-0 (Version None)
Quarter: 2007Q4

REPORT INFORMATION
  Report Type: 
  Country: None (occurrence: None)
  Receive Date: 20071130
  Receipt Date: 20070921
  Transmission Date: 20080405
  Serious: Yes (Hospitalization, Other)
  Sender: FDA-Public Use
  Company Number: PHEH2007US11814

PATIENT
  Age: 60 Year
  Sex: Female
  Weight: 70.7 kg

DRUGS (3)
  1. TEKTURNA [Suspect]
     Indication: HYPERTENSION
     Dosage: 300 MG, QD, ORAL
     Route: 048
     Dates: start: 20070814, end: 20070828
  2. METOPROLOL TARTRATE [Concomitant]
  3. BENICAR HCT (HYDROCHLOROTHIAZIDE, OLMESARTAN MEDOXOMIL) [Concomitant]

REACTIONS (5)
  - ANGIOEDEMA [None]
  - DYSPHAGIA [None]
  - LIP OEDEMA [None]
  - PHARYNGEAL OEDEMA [None]
  - TONGUE OEDEMA [None]
